FAERS Safety Report 6250350-1 (Version None)
Quarter: 2009Q2

REPORT INFORMATION
  Report Type: 
  Country: None (occurrence: None)
  Receive Date: 20090626
  Receipt Date: 20090626
  Transmission Date: 20091009
  Serious: Yes (Hospitalization, Other)
  Sender: FDA-Public Use
  Company Number: None

PATIENT
  Age: 29 Year
  Sex: Female
  Weight: 77.9 kg

DRUGS (2)
  1. LOPINAVIR AND RITONAVIR [Suspect]
     Indication: HIV INFECTION
     Dosage: 400MG/100MG TWICE A DAY ORAL
     Route: 048
     Dates: start: 20060720, end: 20090522
  2. TRUVADA [Suspect]
     Indication: HIV INFECTION
     Dosage: 200MG/300MG ONCE DAILY ORAL
     Route: 048
     Dates: start: 20060720, end: 20090203

REACTIONS (7)
  - ABDOMINAL PAIN LOWER [None]
  - BACK PAIN [None]
  - DRUG EXPOSURE DURING PREGNANCY [None]
  - HAEMATURIA [None]
  - INTRA-UTERINE DEATH [None]
  - PREGNANCY WITH CONTRACEPTIVE DEVICE [None]
  - STILLBIRTH [None]
